FAERS Safety Report 22827151 (Version 7)
Quarter: 2025Q3

REPORT INFORMATION
  Report Type: Report from Study
  Country: CA (occurrence: CA)
  Receive Date: 20230816
  Receipt Date: 20250905
  Transmission Date: 20251021
  Serious: Yes (Hospitalization, Other)
  Sender: BIOCON
  Company Number: CA-MYLANLABS-2023M1079020

PATIENT

DRUGS (2)
  1. HULIO [Suspect]
     Active Substance: ADALIMUMAB-FKJP
     Indication: Crohn^s disease
     Route: 058
     Dates: start: 20211130
  2. HULIO [Suspect]
     Active Substance: ADALIMUMAB-FKJP
     Route: 058
     Dates: start: 20231003

REACTIONS (7)
  - Crohn^s disease [Unknown]
  - Tooth loss [Unknown]
  - Malaise [Unknown]
  - Tooth discolouration [Unknown]
  - Product dose omission issue [Unknown]
  - Off label use [Unknown]
  - Maternal exposure during pregnancy [Unknown]
